FAERS Safety Report 8293773-1 (Version None)
Quarter: 2012Q2

REPORT INFORMATION
  Report Type: 
  Country: None (occurrence: None)
  Receive Date: 20120413
  Receipt Date: 20120411
  Transmission Date: 20120825
  Serious: Yes (Other)
  Sender: FDA-Public Use
  Company Number: ADR-2011-11213

PATIENT
  Sex: Male

DRUGS (3)
  1. MORPHINE SULFATE [Concomitant]
  2. LIORESAL [Suspect]
     Indication: MUSCLE SPASTICITY
     Dosage: 71.1 MCG, DAILY, INTRAT
     Route: 037
  3. BUPIVACAINE HCL [Concomitant]

REACTIONS (4)
  - IMPLANT SITE INFECTION [None]
  - PURULENT DISCHARGE [None]
  - IMPLANT SITE ULCER [None]
  - IMPLANT SITE ERYTHEMA [None]
